FAERS Safety Report 8517445 (Version 2)
Quarter: 2012Q4

REPORT INFORMATION
  Report Type: 
  Country: US (occurrence: US)
  Receive Date: 20120417
  Receipt Date: 20121008
  Transmission Date: 20130627
  Serious: No
  Sender: FDA-Public Use
  Company Number: US-ASTRAZENECA-2011SE44950

PATIENT
  Age: 37 Year
  Sex: Female

DRUGS (4)
  1. NEXIUM [Suspect]
     Route: 048
  2. OMEPRAZOLE [Suspect]
     Route: 048
  3. ZANTAC [Concomitant]
  4. ACIPHEX [Concomitant]

REACTIONS (3)
  - Exposure during pregnancy [Unknown]
  - Nasopharyngitis [Unknown]
  - Drug ineffective [Unknown]
